FAERS Safety Report 6495897-8 (Version None)
Quarter: 2009Q4

REPORT INFORMATION
  Report Type: 
  Country: None (occurrence: None)
  Receive Date: 20091214
  Receipt Date: 20090903
  Transmission Date: 20100525
  Serious: No
  Sender: FDA-Public Use
  Company Number: US-BRISTOL-MYERS SQUIBB COMPANY-14755342

PATIENT
  Age: 19 Year
  Sex: Male

DRUGS (1)
  1. ABILIFY [Suspect]
     Indication: SCHIZOPHRENIA, PARANOID TYPE
     Dosage: 1ST WEEK OF APRIL 2009,RESUMED AGAIN BY LAST WEEK APRIL 2009.
     Route: 048
     Dates: start: 20080101

REACTIONS (1)
  - ERECTILE DYSFUNCTION [None]
